FAERS Safety Report 20201105 (Version 1)
Quarter: 2021Q4

REPORT INFORMATION
  Report Type: Spontaneous
  Country: US (occurrence: US)
  Receive Date: 20211217
  Receipt Date: 20211217
  Transmission Date: 20220303
  Serious: No
  Sender: FDA-Public Use
  Company Number: US-SUNOVION-2021SUN004622

PATIENT
  Sex: Female

DRUGS (1)
  1. LATUDA [Suspect]
     Active Substance: LURASIDONE HYDROCHLORIDE
     Dosage: 80 MG, BID(80MG TABL IN THE MORNING AND 80MG TABL AT NIGHT)
     Route: 048

REACTIONS (2)
  - Drug effect less than expected [Unknown]
  - Off label use [Unknown]
